FAERS Safety Report 10031856 (Version 1)
Quarter: 2014Q1

REPORT INFORMATION
  Report Type: Report from Study
  Country: CA (occurrence: CA)
  Receive Date: 20140324
  Receipt Date: 20140324
  Transmission Date: 20141002
  Serious: Yes (Life-Threatening, Hospitalization)
  Sender: FDA-Public Use
  Company Number: CA-JNJFOC-20140313061

PATIENT
  Age: 17 Year
  Sex: Female
  Weight: 54 kg

DRUGS (6)
  1. REMICADE [Suspect]
     Indication: RHEUMATOID ARTHRITIS
     Route: 042
     Dates: start: 20130815, end: 20140109
  2. GABAPENTIN [Concomitant]
     Dosage: BID TITRATING TO TID ( BUT NOT TOLERATING WELL).
     Route: 065
  3. STATEX [Concomitant]
     Dosage: BID TO TID
     Route: 048
  4. CELEBREX [Concomitant]
     Route: 048
  5. ELAVIL [Concomitant]
     Dosage: HOURS OF SLEEP
     Route: 048
  6. DEMULEN UNSPECIFIED [Concomitant]
     Dosage: 30/21(BIRTH CONTROL)
     Route: 048

REACTIONS (6)
  - Depressed level of consciousness [Not Recovered/Not Resolved]
  - Insomnia [Not Recovered/Not Resolved]
  - Disturbance in attention [Not Recovered/Not Resolved]
  - Amnesia [Not Recovered/Not Resolved]
  - Headache [Not Recovered/Not Resolved]
  - Cold sweat [Not Recovered/Not Resolved]
